FAERS Safety Report 8249212-X (Version None)
Quarter: 2012Q2

REPORT INFORMATION
  Report Type: 
  Country: None (occurrence: None)
  Receive Date: 20120402
  Receipt Date: 20120323
  Transmission Date: 20120825
  Serious: Yes (Hospitalization)
  Sender: FDA-Public Use
  Company Number: JP-UCBSA-054116

PATIENT
  Age: 62 Year
  Sex: Male

DRUGS (27)
  1. KEPPRA [Suspect]
     Route: 048
     Dates: start: 20120310, end: 20120310
  2. MICARDIS [Concomitant]
     Dosage: 20 MG
     Route: 048
     Dates: start: 20110801
  3. DALTEPARIN SODIUM [Concomitant]
     Dosage: 3000DF/3WKS
     Dates: start: 20120309
  4. CINACALCET HYDROCHLORIDE [Concomitant]
     Dosage: 25 MG
     Route: 048
     Dates: start: 20111105
  5. CALCIUM CARBONATE [Concomitant]
     Dosage: 300 MG
     Route: 048
  6. AMIODARONE HYDROCHLORIDE [Concomitant]
     Dosage: 200 MG
     Dates: start: 20110801
  7. PLAVIX [Concomitant]
     Dosage: 75 MG
     Route: 048
     Dates: start: 20120225
  8. ADALAT CC [Concomitant]
     Dosage: 30 MG
     Route: 048
     Dates: start: 20110801
  9. ASPIRIN [Concomitant]
     Dosage: 200 MG
     Route: 048
     Dates: start: 20110217
  10. FOSRENOL [Concomitant]
     Dosage: 3000 MG
     Route: 048
     Dates: start: 20111020
  11. TIMOLOL MALEATE [Concomitant]
     Dosage: DAILY DOSE:2DF
     Route: 047
     Dates: start: 20100101
  12. NICARDIPINE HCL [Concomitant]
     Dosage: DAILY DOSE:10 MG
  13. OXAROL [Concomitant]
     Dosage: 2.5 MCG/3WEEKS
     Route: 041
     Dates: start: 20070101
  14. LANSOPRAZOLE [Concomitant]
     Dosage: 15 MG
     Dates: start: 20070101
  15. ALOSENN [Concomitant]
     Dosage: 2 G
     Route: 048
     Dates: start: 20100128
  16. CLEANAL [Concomitant]
     Dosage: 1200 MG
     Route: 048
     Dates: start: 20110801
  17. CARVEDILOL [Concomitant]
     Dosage: 10 MG
     Route: 048
     Dates: start: 20120302
  18. HEPARIN SODIUM [Concomitant]
     Dosage: 300 DF/3WEEKS
     Dates: end: 20120306
  19. TAPROS [Concomitant]
     Dosage: DAILY DOSE:1DF
     Route: 047
     Dates: start: 20100101
  20. KEPPRA [Suspect]
     Route: 048
     Dates: start: 20120312, end: 20120312
  21. MIRCERA [Concomitant]
     Dosage: 100MCG/3WKS
     Route: 041
     Dates: start: 20120124
  22. WARFARIN SODIUM [Concomitant]
     Dosage: 2 MG
     Route: 048
     Dates: start: 20111201, end: 20120313
  23. AZOPT [Concomitant]
     Dosage: DAILY DOSE:1DF
     Route: 047
     Dates: start: 20100101
  24. WARFARIN SODIUM [Concomitant]
     Dosage: 1MG
     Route: 048
     Dates: start: 20120314
  25. IRON SUCROSE [Concomitant]
     Dosage: 40 MG
     Route: 042
     Dates: start: 20120209
  26. CARVEDILOL [Concomitant]
     Dosage: 20 MG
     Route: 048
     Dates: start: 20070101, end: 20120301
  27. BUSERON [Concomitant]
     Dosage: 140MG
     Route: 041
     Dates: start: 20120306, end: 20120308

REACTIONS (1)
  - RESPIRATORY FAILURE [None]
